FAERS Safety Report 5027349-6 (Version None)
Quarter: 2006Q2

REPORT INFORMATION
  Report Type: 
  Country: None (occurrence: None)
  Receive Date: 20060501
  Receipt Date: 20060210
  Transmission Date: 20061013
  Serious: No
  Sender: FDA-Public Use
  Company Number: 2006PV008548

PATIENT
  Age: 63 Year
  Sex: Female
  Weight: 87.9978 kg

DRUGS (3)
  1. SYMLIN INJECTION (0.6 MG/ML) [Suspect]
     Indication: DIABETES MELLITUS INSULIN-DEPENDENT
     Dosage: 60 MCG;QID;SC
     Route: 058
     Dates: start: 20060209
  2. HUMALOG [Concomitant]
  3. HUMALOG N [Concomitant]

REACTIONS (3)
  - DRUG EFFECT DECREASED [None]
  - NASOPHARYNGITIS [None]
  - SOMNOLENCE [None]
